FAERS Safety Report 13439738 (Version 1)
Quarter: 2017Q2

REPORT INFORMATION
  Report Type: Spontaneous
  Country: SE (occurrence: SE)
  Receive Date: 20170413
  Receipt Date: 20170413
  Transmission Date: 20170830
  Serious: Yes (Disabling)
  Sender: FDA-Public Use
  Company Number: SE-TEVA-757627ISR

PATIENT
  Age: 60 Year
  Sex: Male

DRUGS (6)
  1. BRILIQUE [Concomitant]
     Active Substance: TICAGRELOR
     Route: 048
  2. LIPITOR [Concomitant]
     Active Substance: ATORVASTATIN CALCIUM
     Route: 048
  3. METOPROLOL. [Suspect]
     Active Substance: METOPROLOL
  4. NICORETTE [Concomitant]
     Active Substance: NICOTINE
  5. RAMIPRIL. [Suspect]
     Active Substance: RAMIPRIL
     Route: 048
  6. TROMBYL [Concomitant]
     Active Substance: ASPIRIN
     Route: 048

REACTIONS (1)
  - Periodontitis [Not Recovered/Not Resolved]
